FAERS Safety Report 5128429-7 (Version None)
Quarter: 2006Q4

REPORT INFORMATION
  Report Type: 
  Country: None (occurrence: None)
  Receive Date: 20061006
  Receipt Date: 20060927
  Transmission Date: 20070319
  Serious: Yes (Hospitalization, Other)
  Sender: FDA-Public Use
  Company Number: THYM-11038

PATIENT
  Age: 55 Year
  Sex: Female
  Weight: 54.2 kg

DRUGS (11)
  1. THYMOGLOBULIN [Suspect]
     Indication: MULTIPLE MYELOMA
     Dosage: 100 MG ONCE IV
     Route: 042
     Dates: start: 20060815, end: 20060815
  2. TYLENOL [Concomitant]
  3. HYDROCORTISONE ACETATE [Concomitant]
  4. OXYCONTIN [Concomitant]
  5. PROTONIX [Concomitant]
  6. VIVELLE-DOT [Concomitant]
  7. CENTRUM SILVER [Concomitant]
  8. ATIVAN [Concomitant]
  9. OXYCODONE HCL [Concomitant]
  10. PREVASTATIN [Concomitant]
  11. GABAPENTIN [Concomitant]

REACTIONS (5)
  - DIZZINESS [None]
  - HYPOTENSION [None]
  - INFLAMMATION [None]
  - PYREXIA [None]
  - WHEEZING [None]
